FAERS Safety Report 7951612-X (Version None)
Quarter: 2011Q4

REPORT INFORMATION
  Report Type: 
  Country: None (occurrence: None)
  Receive Date: 20111201
  Receipt Date: 20111124
  Transmission Date: 20120403
  Serious: Yes (Hospitalization)
  Sender: FDA-Public Use
  Company Number: CA-UCBSA-042354

PATIENT
  Age: 34 Year
  Sex: Male
  Weight: 63 kg

DRUGS (3)
  1. CERTOLIZUMAB PEGOL [Suspect]
     Indication: CROHN'S DISEASE
     Dosage: 16:DOSES RECEIVED
     Route: 058
     Dates: start: 20090710, end: 20111102
  2. CERTOLIZUMAB PEGOL [Suspect]
     Route: 058
     Dates: start: 20090101
  3. TYLENOL MIGRAINE [Concomitant]
     Indication: MIGRAINE
     Dosage: 2 TABLETS AS NEEDED
     Route: 048
     Dates: start: 20100415

REACTIONS (2)
  - RENAL CELL CARCINOMA [None]
  - ABDOMINAL WOUND DEHISCENCE [None]
